FAERS Safety Report 8433621-X (Version None)
Quarter: 2012Q2

REPORT INFORMATION
  Report Type: 
  Country: None (occurrence: None)
  Receive Date: 20120323
  Receipt Date: 20111007
  Transmission Date: 20120825
  Serious: Yes (Other)
  Sender: FDA-Public Use
  Company Number: 163-21880-11071484

PATIENT
  Age: 64 Year
  Sex: Female

DRUGS (6)
  1. BACTRIM [Concomitant]
  2. ASPIRIN [Concomitant]
  3. NEXIUM [Concomitant]
  4. REVLIMID [Suspect]
     Indication: MULTIPLE MYELOMA
     Dosage: 25 MG, DAILY X 14 DAYS/OFF 7 DAYS : 15 MG, QD X21 DAYS; OFF 7 DAYS, PO
     Route: 048
     Dates: start: 20110512, end: 20110711
  5. REVLIMID [Suspect]
     Indication: MULTIPLE MYELOMA
     Dosage: 25 MG, DAILY X 14 DAYS/OFF 7 DAYS : 15 MG, QD X21 DAYS; OFF 7 DAYS, PO
     Route: 048
     Dates: start: 20110909, end: 20110101
  6. ACYCLOVIR [Concomitant]

REACTIONS (1)
  - PLATELET COUNT DECREASED [None]
